FAERS Safety Report 20028614 (Version 1)
Quarter: 2021Q4

REPORT INFORMATION
  Report Type: Spontaneous
  Country: US (occurrence: US)
  Receive Date: 20211103
  Receipt Date: 20211103
  Transmission Date: 20220303
  Serious: No
  Sender: FDA-Public Use
  Company Number: US-SA-SAC20211101000554

PATIENT
  Age: 59 Year
  Sex: Female

DRUGS (7)
  1. DUPIXENT [Suspect]
     Active Substance: DUPILUMAB
     Indication: Dermatitis atopic
     Dosage: 300 MG, QOW
     Route: 058
     Dates: start: 20210507
  2. PREGABALIN [Concomitant]
     Active Substance: PREGABALIN
  3. PANTOPRAZOLE [Concomitant]
     Active Substance: PANTOPRAZOLE
  4. MELOXICAM [Concomitant]
     Active Substance: MELOXICAM
  5. SUNOSI [Concomitant]
     Active Substance: SOLRIAMFETOL
  6. ESTROGENS, ESTERIFIED [Concomitant]
     Active Substance: ESTROGENS, ESTERIFIED
  7. COSENTYX [Concomitant]
     Active Substance: SECUKINUMAB

REACTIONS (1)
  - Drug ineffective [Unknown]
